FAERS Safety Report 14774733 (Version 1)
Quarter: 2018Q2

REPORT INFORMATION
  Report Type: Spontaneous
  Country: US (occurrence: US)
  Receive Date: 20180418
  Receipt Date: 20180418
  Transmission Date: 20180711
  Serious: No
  Sender: FDA-Public Use
  Company Number: US-PFIZER INC-2018158562

PATIENT
  Age: 60 Year
  Sex: Female
  Weight: 57 kg

DRUGS (1)
  1. LYRICA [Suspect]
     Active Substance: PREGABALIN
     Indication: FIBROMYALGIA
     Dosage: 75 MG, 3X/DAY
     Route: 048

REACTIONS (7)
  - Withdrawal syndrome [Unknown]
  - Nausea [Unknown]
  - Headache [Unknown]
  - Weight increased [Unknown]
  - Pain [Unknown]
  - Vomiting [Unknown]
  - Visual impairment [Unknown]

NARRATIVE: CASE EVENT DATE: 2016
